FAERS Safety Report 21541854 (Version 1)
Quarter: 2022Q4

REPORT INFORMATION
  Report Type: Spontaneous
  Country: CN (occurrence: CN)
  Receive Date: 20221102
  Receipt Date: 20221102
  Transmission Date: 20230113
  Serious: Yes (Other)
  Sender: FDA-Public Use
  Company Number: None

PATIENT
  Age: 67 Year
  Sex: Female
  Weight: 64 kg

DRUGS (6)
  1. CYCLOPHOSPHAMIDE [Suspect]
     Active Substance: CYCLOPHOSPHAMIDE
     Indication: Breast cancer female
     Dosage: 950 MG, QD, DILUTED WITH 50 ML OF SODIUM CHLORIDE, FIRST CHEMOTHERAPY
     Route: 042
     Dates: start: 20220905, end: 20220905
  2. CYCLOPHOSPHAMIDE [Suspect]
     Active Substance: CYCLOPHOSPHAMIDE
     Indication: Chemotherapy
  3. SODIUM CHLORIDE [Suspect]
     Active Substance: SODIUM CHLORIDE
     Indication: Medication dilution
     Dosage: 50 ML, QD, USED TO DILUTE 950 MG OF CYCLOPHOSPHAMIDE, FIRST CHEMOTHERAPY
     Route: 042
     Dates: start: 20220905, end: 20220905
  4. SODIUM CHLORIDE [Suspect]
     Active Substance: SODIUM CHLORIDE
     Dosage: 100ML, QD, USED TO DILUTE 135 MG OF EPIRUBICIN HYDROCHLORIDE, FIRST CHEMOTHERAPY
     Route: 041
     Dates: start: 20220905, end: 20220905
  5. EPIRUBICIN [Suspect]
     Active Substance: EPIRUBICIN
     Indication: Breast cancer female
     Dosage: 135 MG, QD, DILUTED WITH SODIUM CHLORIDE 100 ML, FIRST CHEMOTHERAPY
     Route: 041
     Dates: start: 20220905, end: 20220905
  6. EPIRUBICIN [Suspect]
     Active Substance: EPIRUBICIN
     Indication: Chemotherapy

REACTIONS (2)
  - White blood cell count decreased [Recovered/Resolved]
  - Agranulocytosis [Recovered/Resolved]

NARRATIVE: CASE EVENT DATE: 20220916
